FAERS Safety Report 22218644 (Version 1)
Quarter: 2023Q2

REPORT INFORMATION
  Report Type: Spontaneous
  Country: CN (occurrence: CN)
  Receive Date: 20230417
  Receipt Date: 20230417
  Transmission Date: 20230722
  Serious: Yes (Other)
  Sender: FDA-Public Use
  Company Number: CN-ELI_LILLY_AND_COMPANY-CN202304004242

PATIENT
  Age: 23 Year
  Sex: Male

DRUGS (9)
  1. FLUOXETINE HYDROCHLORIDE [Suspect]
     Active Substance: FLUOXETINE HYDROCHLORIDE
     Indication: Schizophrenia
     Dosage: 20 MG, DAILY
     Route: 065
     Dates: start: 20190910
  2. FLUOXETINE HYDROCHLORIDE [Suspect]
     Active Substance: FLUOXETINE HYDROCHLORIDE
     Dosage: 20 UNK
     Route: 065
     Dates: start: 20190911
  3. FLUOXETINE HYDROCHLORIDE [Suspect]
     Active Substance: FLUOXETINE HYDROCHLORIDE
     Dosage: 20 UNK
     Route: 065
     Dates: start: 20190917
  4. FLUOXETINE HYDROCHLORIDE [Suspect]
     Active Substance: FLUOXETINE HYDROCHLORIDE
     Dosage: 40 UNK
     Route: 065
     Dates: start: 20191009
  5. FLUOXETINE HYDROCHLORIDE [Suspect]
     Active Substance: FLUOXETINE HYDROCHLORIDE
     Dosage: 40 UNK
     Route: 065
     Dates: start: 20191112
  6. CLOZAPINE [Concomitant]
     Active Substance: CLOZAPINE
     Indication: Schizophrenia
     Dosage: 125 MG, DAILY
     Route: 065
     Dates: start: 20190911
  7. CLOZAPINE [Concomitant]
     Active Substance: CLOZAPINE
     Dosage: 175 MG, DAILY
     Route: 065
     Dates: start: 20190917
  8. CLOZAPINE [Concomitant]
     Active Substance: CLOZAPINE
     Dosage: 250 MG, DAILY
     Route: 065
     Dates: start: 20191009
  9. CLOZAPINE [Concomitant]
     Active Substance: CLOZAPINE
     Dosage: 225 MG, DAILY
     Route: 065
     Dates: start: 20191112

REACTIONS (2)
  - Antipsychotic drug level increased [Recovered/Resolved]
  - Off label use [Unknown]

NARRATIVE: CASE EVENT DATE: 20190917
